FAERS Safety Report 7273006-5 (Version None)
Quarter: 2011Q1

REPORT INFORMATION
  Report Type: 
  Country: None (occurrence: None)
  Receive Date: 20110203
  Receipt Date: 20110126
  Transmission Date: 20110831
  Serious: Yes (Other)
  Sender: FDA-Public Use
  Company Number: B0667743A

PATIENT
  Sex: Female

DRUGS (4)
  1. LENDORMIN [Concomitant]
     Indication: INSOMNIA
     Dosage: .25MG PER DAY
     Route: 048
     Dates: start: 20070420, end: 20070531
  2. PAXIL [Suspect]
     Route: 048
     Dates: start: 20070508, end: 20070508
  3. DEPAS [Concomitant]
     Indication: INSOMNIA
     Dosage: .5MG PER DAY
     Route: 048
     Dates: start: 20070420, end: 20070531
  4. PAXIL [Suspect]
     Indication: ANXIETY
     Dosage: 10MG PER DAY
     Route: 048
     Dates: start: 20070420, end: 20070507

REACTIONS (4)
  - ACTIVATION SYNDROME [None]
  - ANXIETY [None]
  - MOOD ALTERED [None]
  - AGGRESSION [None]
